FAERS Safety Report 7060003 (Version 19)
Quarter: 2014Q1

REPORT INFORMATION
  Report Type: Spontaneous
  Country: US (occurrence: US)
  Receive Date: 20090723
  Receipt Date: 20140128
  Transmission Date: 20141002
  Serious: Yes (Death, Hospitalization, Other)
  Sender: FDA-Public Use
  Company Number: PHEH2009US07737

PATIENT
  Sex: Female

DRUGS (18)
  1. ZOMETA [Suspect]
     Indication: METASTASES TO BONE
     Dosage: 4 MG, QMO
     Route: 042
     Dates: start: 20040630, end: 20050421
  2. ZOMETA [Suspect]
     Indication: METASTATIC RENAL CELL CARCINOMA
     Dosage: 3.3 MG, UNK
     Route: 042
     Dates: start: 20050421
  3. HYDROCODIN [Concomitant]
  4. XALATAN [Concomitant]
  5. FENTANYL [Concomitant]
  6. MIDAZOLAM                               /USA/ [Concomitant]
  7. LORTAB [Concomitant]
  8. CLEOCIN [Concomitant]
  9. KEFLEX                                  /USA/ [Concomitant]
  10. NORVASC [Concomitant]
  11. DETROL [Concomitant]
  12. PAXIL [Concomitant]
  13. LEXAPRO [Concomitant]
     Dosage: 15 MG, QD
  14. DILTIAZEM [Concomitant]
     Dosage: 120 MG, QD
  15. CLONAZEPAM [Concomitant]
     Dosage: 0.5 MG, PRN
  16. TRAZODONE [Concomitant]
     Dosage: 50 MG, QD
  17. ZOCOR [Concomitant]
  18. HYDROCHLOROTHIAZIDE [Concomitant]
     Dosage: 12.5 MG, QD

REACTIONS (95)
  - Osteonecrosis of jaw [Fatal]
  - Injury [Fatal]
  - Dental caries [Fatal]
  - Tooth fracture [Fatal]
  - Oral infection [Fatal]
  - Mastication disorder [Fatal]
  - Tongue ulceration [Fatal]
  - Exposed bone in jaw [Fatal]
  - Tooth abscess [Fatal]
  - Toothache [Fatal]
  - Abscess jaw [Fatal]
  - Osteitis [Fatal]
  - Pain in jaw [Fatal]
  - Bone swelling [Fatal]
  - Dental plaque [Fatal]
  - Tooth discolouration [Fatal]
  - Impaired healing [Fatal]
  - Periodontal disease [Fatal]
  - Gingival pain [Fatal]
  - Pain in extremity [Unknown]
  - Abasia [Unknown]
  - Metastatic renal cell carcinoma [Unknown]
  - Hypertension [Unknown]
  - Open angle glaucoma [Unknown]
  - Diarrhoea [Unknown]
  - Haemorrhoids [Unknown]
  - Cerebral haemorrhage [Unknown]
  - Personality disorder [Recovered/Resolved]
  - Aortic calcification [Unknown]
  - Uterine enlargement [Unknown]
  - Cervicitis [Unknown]
  - Vaginal discharge [Unknown]
  - Hip fracture [Unknown]
  - Fall [Unknown]
  - Deafness neurosensory [Unknown]
  - Suicidal ideation [Unknown]
  - Peptic ulcer [Unknown]
  - Osteoarthritis [Unknown]
  - Cerebral infarction [Unknown]
  - Cerebral atrophy [Unknown]
  - Dysphonia [Unknown]
  - Bronchitis [Unknown]
  - Pharyngitis [Unknown]
  - Vision blurred [Unknown]
  - Weight decreased [Unknown]
  - Hypokalaemia [Unknown]
  - Oropharyngeal pain [Unknown]
  - Productive cough [Unknown]
  - Odynophagia [Unknown]
  - Facet joint syndrome [Unknown]
  - Bursitis [Unknown]
  - Bipolar disorder [Unknown]
  - Influenza [Unknown]
  - Hot flush [Unknown]
  - Nervousness [Unknown]
  - Insomnia [Unknown]
  - Delusion [Unknown]
  - Confusional state [Unknown]
  - Restlessness [Unknown]
  - Anger [Unknown]
  - Myalgia [Unknown]
  - Hallucination, auditory [Unknown]
  - Arthralgia [Unknown]
  - Fatigue [Unknown]
  - Gait disturbance [Unknown]
  - Dyspnoea [Unknown]
  - Spondylolisthesis [Unknown]
  - Osteolysis [Unknown]
  - Bone density decreased [Unknown]
  - Pathological fracture [Unknown]
  - Stress urinary incontinence [Unknown]
  - Lymphadenopathy mediastinal [Unknown]
  - Asthenia [Unknown]
  - Groin pain [Unknown]
  - Lung disorder [Unknown]
  - Arthropathy [Unknown]
  - Dementia [Unknown]
  - Vaginal haemorrhage [Unknown]
  - Chronic obstructive pulmonary disease [Unknown]
  - Hemiparesis [Unknown]
  - Arthritis [Unknown]
  - Metastases to bone [Unknown]
  - Bone lesion [Unknown]
  - Aortic arteriosclerosis [Unknown]
  - Post herpetic neuralgia [Unknown]
  - Gastrointestinal haemorrhage [Unknown]
  - Metastatic malignant melanoma [Unknown]
  - Second primary malignancy [Unknown]
  - Subarachnoid haemorrhage [Unknown]
  - Pulmonary mass [Unknown]
  - Hepatic cyst [Unknown]
  - Renal cyst [Unknown]
  - Large intestine polyp [Unknown]
  - Abdominal pain [Unknown]
  - Dizziness [Unknown]
